FAERS Safety Report 9835071 (Version 1)
Quarter: 2014Q1

REPORT INFORMATION
  Report Type: Spontaneous
  Country: US (occurrence: US)
  Receive Date: 20140122
  Receipt Date: 20140122
  Transmission Date: 20141002
  Serious: No
  Sender: FDA-Public Use
  Company Number: US-BAYER-2014-006749

PATIENT
  Age: 84 Year
  Sex: Female

DRUGS (3)
  1. CIPRO [Suspect]
     Indication: URINARY TRACT INFECTION
     Dosage: 250 MG, QID
     Route: 048
  2. CIPRO [Suspect]
     Indication: URINARY TRACT INFECTION
     Dosage: 500 MG, BID
     Route: 048
  3. CIPRO [Suspect]
     Indication: DIVERTICULITIS
     Route: 042

REACTIONS (6)
  - Tendonitis [None]
  - Pain in extremity [None]
  - Joint crepitation [None]
  - Pain in extremity [None]
  - Pain in extremity [None]
  - Ligament sprain [None]
